FAERS Safety Report 25160386 (Version 1)
Quarter: 2025Q2

REPORT INFORMATION
  Report Type: Spontaneous
  Country: GB (occurrence: GB)
  Receive Date: 20250404
  Receipt Date: 20250404
  Transmission Date: 20250717
  Serious: Yes (Other)
  Sender: AUROBINDO
  Company Number: GB-MHRA-MED-202503232241418960-KQTDC

PATIENT
  Age: 74 Year
  Sex: Female
  Weight: 60 kg

DRUGS (1)
  1. CLARITHROMYCIN [Suspect]
     Active Substance: CLARITHROMYCIN
     Indication: Chronic sinusitis
     Dosage: 500 MILLIGRAM, TWO TIMES A DAY
     Route: 065
     Dates: start: 20250322

REACTIONS (1)
  - Arthralgia [Not Recovered/Not Resolved]

NARRATIVE: CASE EVENT DATE: 20250322
